FAERS Safety Report 9719924 (Version 1)
Quarter: 2013Q4

REPORT INFORMATION
  Report Type: Spontaneous
  Country: GB (occurrence: GB)
  Receive Date: 20131128
  Receipt Date: 20131128
  Transmission Date: 20140711
  Serious: Yes (Congenital Anomaly)
  Sender: FDA-Public Use
  Company Number: GB-TEVA-445901ISR

PATIENT
  Sex: 0

DRUGS (3)
  1. METFORMIN [Suspect]
     Indication: POLYCYSTIC OVARIES
     Dosage: 1500 MILLIGRAM DAILY;
     Route: 064
  2. CLOMID [Suspect]
     Indication: POLYCYSTIC OVARIES
     Dosage: 100 DAYS 2 TO 6 OF CYCLE
     Route: 064
  3. GAVISCON [Concomitant]
     Indication: FOETAL EXPOSURE DURING PREGNANCY
     Route: 064

REACTIONS (1)
  - Exomphalos [Unknown]
